FAERS Safety Report 25249917 (Version 1)
Quarter: 2025Q2

REPORT INFORMATION
  Report Type: Spontaneous
  Country: US (occurrence: US)
  Receive Date: 20250429
  Receipt Date: 20250429
  Transmission Date: 20250717
  Serious: No
  Sender: INNOGENIX, LLC
  Company Number: US-Innogenix, LLC-2175807

PATIENT

DRUGS (5)
  1. METRONIDAZOLE [Suspect]
     Active Substance: METRONIDAZOLE
     Indication: Product used for unknown indication
  2. SUMATRIPTAN SUCCINATE [Suspect]
     Active Substance: SUMATRIPTAN SUCCINATE
  3. PREDNISOLONE [Suspect]
     Active Substance: PREDNISOLONE
  4. CYCLOSPORINE [Suspect]
     Active Substance: CYCLOSPORINE
  5. MESALAMINE [Suspect]
     Active Substance: MESALAMINE

REACTIONS (1)
  - Tinnitus [Unknown]
